FAERS Safety Report 10502840 (Version 1)
Quarter: 2014Q4

REPORT INFORMATION
  Report Type: Spontaneous
  Country: VE (occurrence: VE)
  Receive Date: 20141007
  Receipt Date: 20141007
  Transmission Date: 20150528
  Serious: Yes (Other)
  Sender: FDA-Public Use
  Company Number: PHHY2014VE130291

PATIENT
  Sex: Male
  Weight: 20.5 kg

DRUGS (3)
  1. FRISIUM [Concomitant]
     Active Substance: CLOBAZAM
     Indication: SEIZURE
     Dosage: 10 MG, BID
  2. TRILEPTAL [Suspect]
     Active Substance: OXCARBAZEPINE
     Indication: SEIZURE
     Dosage: 100 ML, BID
     Route: 048
  3. KEPPRA [Concomitant]
     Active Substance: LEVETIRACETAM
     Indication: SEIZURE
     Dosage: 500 MG, BID

REACTIONS (7)
  - Psychomotor hyperactivity [Unknown]
  - Sleep disorder [Unknown]
  - Somnambulism [Unknown]
  - Anxiety [Unknown]
  - Personality change [Unknown]
  - Seizure [Unknown]
  - Brain neoplasm [Unknown]
